FAERS Safety Report 7679353-7 (Version None)
Quarter: 2011Q3

REPORT INFORMATION
  Report Type: 
  Country: None (occurrence: None)
  Receive Date: 20110812
  Receipt Date: 20110812
  Transmission Date: 20111222
  Serious: Yes (Life-Threatening, Hospitalization, Other)
  Sender: FDA-Public Use
  Company Number: PHHO2009DE15332

PATIENT
  Sex: Female
  Weight: 68.9 kg

DRUGS (12)
  1. SILDENAFIL CITRATE [Concomitant]
     Indication: PULMONARY ARTERIAL HYPERTENSION
  2. GLEEVEC [Suspect]
     Indication: PULMONARY ARTERIAL HYPERTENSION
     Dosage: DOUBLE BLIND
     Route: 048
     Dates: start: 20091126, end: 20091207
  3. HYDROCHLOROTHIAZIDE [Concomitant]
     Indication: PULMONARY ARTERIAL HYPERTENSION
  4. PHENPROCOUMON [Interacting]
  5. VESICARE [Concomitant]
     Indication: POLLAKIURIA
  6. PANTOPRAZOLE [Concomitant]
     Indication: PROPHYLAXIS
  7. VALPROIC ACID [Concomitant]
     Indication: BLADDER DISORDER
  8. SPIRONOLACTONE [Concomitant]
     Indication: PULMONARY ARTERIAL HYPERTENSION
  9. ANTICOAGULANTS [Concomitant]
  10. DIURETICS [Interacting]
  11. TORSEMIDE [Concomitant]
     Indication: PULMONARY ARTERIAL HYPERTENSION
  12. SITAXENTAN [Concomitant]
     Indication: PULMONARY ARTERIAL HYPERTENSION

REACTIONS (19)
  - SUBDURAL HAEMORRHAGE [None]
  - GASTROENTERITIS VIRAL [None]
  - VOMITING [None]
  - GENERAL PHYSICAL HEALTH DETERIORATION [None]
  - PROTHROMBIN TIME SHORTENED [None]
  - OVERDOSE [None]
  - HYPOKALAEMIA [None]
  - HYPONATRAEMIA [None]
  - ELECTROLYTE IMBALANCE [None]
  - FALL [None]
  - METABOLIC ALKALOSIS [None]
  - RESPIRATORY ALKALOSIS [None]
  - ASTHENIA [None]
  - HYPERVENTILATION [None]
  - INTERNATIONAL NORMALISED RATIO INCREASED [None]
  - COAGULOPATHY [None]
  - HAEMATOMA [None]
  - DRUG INTERACTION [None]
  - HAEMATEMESIS [None]
